FAERS Safety Report 19412583 (Version 5)
Quarter: 2022Q2

REPORT INFORMATION
  Report Type: Spontaneous
  Country: GB (occurrence: GB)
  Receive Date: 20210614
  Receipt Date: 20220629
  Transmission Date: 20220721
  Serious: Yes (Other)
  Sender: FDA-Public Use
  Company Number: GB-NAPPMUNDI-GBR-2021-0087840

PATIENT
  Age: 68 Year
  Sex: Female

DRUGS (4)
  1. MORPHINE SULFATE [Suspect]
     Active Substance: MORPHINE SULFATE
     Indication: Osteoarthritis
     Dosage: 5 MG, BID
     Route: 065
  2. MORPHINE SULFATE [Suspect]
     Active Substance: MORPHINE SULFATE
     Dosage: UNK (STRENGTH 5MG)
     Route: 065
     Dates: start: 201901
  3. NAPROXEN [Concomitant]
     Active Substance: NAPROXEN
     Dosage: 230 MG, BID
  4. AMITRIPTYLINE [Concomitant]
     Active Substance: AMITRIPTYLINE
     Dosage: 5 MG, NOCTE

REACTIONS (2)
  - Urinary incontinence [Not Recovered/Not Resolved]
  - Neurogenic bladder [Recovering/Resolving]
